FAERS Safety Report 13801551 (Version 1)
Quarter: 2017Q3

REPORT INFORMATION
  Report Type: Spontaneous
  Country: US (occurrence: US)
  Receive Date: 20170727
  Receipt Date: 20170727
  Transmission Date: 20171127
  Serious: Yes (Hospitalization, Other)
  Sender: FDA-Public Use
  Company Number: US-FERRINGPH-2017FE03469

PATIENT

DRUGS (1)
  1. CERVIDIL [Suspect]
     Active Substance: DINOPROSTONE
     Indication: PRODUCT USED FOR UNKNOWN INDICATION
     Dosage: UNK UNK, ONCE/SINGLE
     Route: 065
     Dates: start: 201706, end: 201706

REACTIONS (3)
  - Haemorrhage [Recovered/Resolved]
  - Pain [Recovered/Resolved]
  - Uterine hyperstimulation [Recovered/Resolved]

NARRATIVE: CASE EVENT DATE: 201706
